FAERS Safety Report 7844017-3 (Version None)
Quarter: 2011Q4

REPORT INFORMATION
  Report Type: 
  Country: None (occurrence: None)
  Receive Date: 20111025
  Receipt Date: 20111014
  Transmission Date: 20120403
  Serious: Yes (Hospitalization)
  Sender: FDA-Public Use
  Company Number: FR-BAYER-2011-100085

PATIENT
  Age: 33 Year
  Sex: Female

DRUGS (2)
  1. JASMINE [Suspect]
     Indication: ORAL CONTRACEPTION
     Dosage: UNK
     Route: 048
  2. TUSSIPAX ORAL [Suspect]
     Indication: COUGH
     Dosage: UNK
     Route: 048
     Dates: end: 20110502

REACTIONS (2)
  - PANCREATITIS ACUTE [None]
  - ABDOMINAL PAIN [None]
